FAERS Safety Report 9432539 (Version 2)
Quarter: 2013Q4

REPORT INFORMATION
  Report Type: Report from Study
  Country: BR (occurrence: BR)
  Receive Date: 20130731
  Receipt Date: 20131003
  Transmission Date: 20140711
  Serious: Yes (Hospitalization, Other)
  Sender: FDA-Public Use
  Company Number: PHHY2013BR081172

PATIENT
  Sex: Female

DRUGS (14)
  1. EXJADE [Suspect]
     Indication: SICKLE CELL ANAEMIA
     Dosage: 1250 MG, UNK
     Route: 048
  2. EXJADE [Suspect]
     Dosage: 1000 MG, UNK
     Route: 048
  3. EXJADE [Suspect]
     Dosage: 500 MG, DAILY
     Route: 048
  4. CARBAMAZEPINE [Concomitant]
     Dosage: 1.5 MG, TID
  5. FOLIC ACID [Concomitant]
     Dosage: 1 DF, QD
  6. VALPROIC ACID [Concomitant]
     Dosage: UNK UKN, UNK
  7. VERTIX//FLUNARIZINE DIHYDROCHLORIDE [Concomitant]
     Dosage: UNK UKN, UNK
  8. DIPYRONE [Concomitant]
     Dosage: UNK UKN, UNK
  9. DICLOFENAC [Concomitant]
     Dosage: UNK UKN, UNK
  10. LUFTAL [Concomitant]
     Dosage: UNK UKN, UNK
  11. HYDROXYCARBAMIDE [Concomitant]
     Dosage: UNK UKN, UNK
  12. ENALAPRIL [Concomitant]
     Dosage: 5 MG, UNK
  13. PHENYTOIN [Concomitant]
     Dosage: UNK UKN, UNK
     Dates: start: 20130704
  14. DEPAKENE [Concomitant]
     Dosage: UNK UKN, UNK
     Dates: start: 2013

REACTIONS (13)
  - Cerebrovascular accident [Recovering/Resolving]
  - Walking disability [Recovering/Resolving]
  - Movement disorder [Recovering/Resolving]
  - Blindness [Recovering/Resolving]
  - Coma [Unknown]
  - Ischaemia [Recovering/Resolving]
  - Liver disorder [Recovering/Resolving]
  - Sedation [Not Recovered/Not Resolved]
  - Asthenia [Recovering/Resolving]
  - Emotional disorder [Recovering/Resolving]
  - Gamma-glutamyltransferase abnormal [Unknown]
  - Abdominal distension [Unknown]
  - Hepatic enzyme abnormal [Recovering/Resolving]
